FAERS Safety Report 8391024-0 (Version None)
Quarter: 2012Q2

REPORT INFORMATION
  Report Type: 
  Country: None (occurrence: None)
  Receive Date: 20120515
  Receipt Date: 20120510
  Transmission Date: 20120825
  Serious: Yes (Death, Life-Threatening, Hospitalization)
  Sender: FDA-Public Use
  Company Number: 2012SP020860

PATIENT
  Age: 59 Year
  Sex: Male

DRUGS (8)
  1. LAMOTRIGINE [Concomitant]
  2. OLMESARTAN MEDOXOMIL [Concomitant]
  3. CITALOPRAM [Concomitant]
  4. BEVACIZUMAB (BEVACIZUMAB) [Suspect]
     Indication: BRAIN NEOPLASM MALIGNANT
     Dosage: 1 DF;Q3W;IV
     Route: 042
     Dates: start: 20100420, end: 20111129
  5. CLOBAZAM [Concomitant]
  6. LEVETIRACETAM [Concomitant]
  7. TEMOZOLOMIDE [Suspect]
     Indication: BRAIN NEOPLASM MALIGNANT
     Dosage: 400 MG;QD;PO
     Route: 048
     Dates: start: 20100420
  8. BISOPROLOL FUMARATE [Concomitant]

REACTIONS (11)
  - DYSPHAGIA [None]
  - INFECTION [None]
  - LUNG DISORDER [None]
  - SLUGGISHNESS [None]
  - CONVULSION [None]
  - CONFUSIONAL STATE [None]
  - PROGRESSIVE MULTIFOCAL LEUKOENCEPHALOPATHY [None]
  - SEPSIS [None]
  - APATHY [None]
  - FATIGUE [None]
  - CEREBROVASCULAR ACCIDENT [None]
